FAERS Safety Report 9777633 (Version 1)
Quarter: 2013Q4

REPORT INFORMATION
  Report Type: Spontaneous
  Country: US (occurrence: US)
  Receive Date: 20131223
  Receipt Date: 20131223
  Transmission Date: 20140711
  Serious: No
  Sender: FDA-Public Use
  Company Number: US-009507513-1312USA008062

PATIENT
  Age: 22 Year
  Sex: Female

DRUGS (2)
  1. NEXPLANON [Suspect]
     Indication: CONTRACEPTION
     Dosage: THREE-YEAR DEVICE
     Route: 059
     Dates: start: 20120821
  2. ANTIMICROBIAL (UNSPECIFIED) [Concomitant]
     Indication: KIDNEY INFECTION

REACTIONS (2)
  - Menorrhagia [Unknown]
  - Drug ineffective [Unknown]
